FAERS Safety Report 9900937 (Version 1)
Quarter: 2014Q1

REPORT INFORMATION
  Report Type: Report from Study
  Country: US (occurrence: US)
  Receive Date: 20140217
  Receipt Date: 20140217
  Transmission Date: 20141002
  Serious: No
  Sender: FDA-Public Use
  Company Number: US-ABBVIE-13P-163-1061758-00

PATIENT
  Sex: Male
  Weight: 95.34 kg

DRUGS (3)
  1. SIMCOR 500/40 [Suspect]
     Indication: HIGH DENSITY LIPOPROTEIN DECREASED
     Dosage: 500/40MG DAILY
     Dates: start: 2010
  2. ASA [Concomitant]
     Indication: PRODUCT USED FOR UNKNOWN INDICATION
  3. LEVOTHYROXINE [Concomitant]
     Indication: PRODUCT USED FOR UNKNOWN INDICATION

REACTIONS (4)
  - Flushing [Unknown]
  - Paraesthesia [Unknown]
  - Erythema [Unknown]
  - Pruritus [Unknown]
